FAERS Safety Report 11515667 (Version 1)
Quarter: 2015Q3

REPORT INFORMATION
  Report Type: Spontaneous
  Country: LB (occurrence: LB)
  Receive Date: 20150916
  Receipt Date: 20150916
  Transmission Date: 20151125
  Serious: Yes (Death)
  Sender: FDA-Public Use
  Company Number: LB-ASTRAZENECA-2015SE87044

PATIENT
  Age: 63 Year
  Sex: Male
  Weight: 78 kg

DRUGS (1)
  1. BRILINTA [Suspect]
     Active Substance: TICAGRELOR
     Indication: ANGINA PECTORIS
     Route: 048

REACTIONS (3)
  - Lung cancer metastatic [Fatal]
  - Product use issue [Fatal]
  - Off label use [Fatal]

NARRATIVE: CASE EVENT DATE: 20141211
